FAERS Safety Report 20068506 (Version 5)
Quarter: 2022Q1

REPORT INFORMATION
  Report Type: Spontaneous
  Country: CH (occurrence: CH)
  Receive Date: 20211115
  Receipt Date: 20220216
  Transmission Date: 20220423
  Serious: Yes (Other)
  Sender: FDA-Public Use
  Company Number: CH-ASTELLAS-2021US043207

PATIENT
  Sex: Male

DRUGS (10)
  1. XTANDI [Suspect]
     Active Substance: ENZALUTAMIDE
     Indication: Hormone-dependent prostate cancer
     Dosage: 160 (4X40) MG, ONCE DAILY
     Route: 065
     Dates: start: 20210503, end: 20210531
  2. ZOLADEX [Suspect]
     Active Substance: GOSERELIN ACETATE
     Indication: Hormone-dependent prostate cancer
     Dosage: 10.8 MG, EVERY 3 MONTHS
     Route: 058
     Dates: start: 202102
  3. ASPIRIN [Concomitant]
     Active Substance: ASPIRIN
     Indication: Product used for unknown indication
     Dosage: 100 MG, ONCE DAILY (1-0-0)
     Route: 065
  4. EZETIMIBE [Concomitant]
     Active Substance: EZETIMIBE
     Indication: Product used for unknown indication
     Dosage: 10 MG, ONCE DAILY (1-0-0)
     Route: 065
  5. PANTOPRAZOLE [Concomitant]
     Active Substance: PANTOPRAZOLE
     Indication: Product used for unknown indication
     Dosage: 40 MG, ONCE DAILY (1-0-0)
     Route: 065
  6. ROSUVASTATIN [Concomitant]
     Active Substance: ROSUVASTATIN
     Indication: Product used for unknown indication
     Dosage: 20 MG, ONCE DAILY (1-0-0)
     Route: 065
  7. Vascord [Concomitant]
     Indication: Product used for unknown indication
     Dosage: 20/5/12.5 MG ONCE DAILY (1-0-0)
     Route: 065
  8. METOPROLOL [Concomitant]
     Active Substance: METOPROLOL
     Indication: Product used for unknown indication
     Dosage: 25 MG, ONCE DAILY (1-0-0)
     Route: 065
  9. ECHINAMED [Concomitant]
     Indication: Product used for unknown indication
     Dosage: UNK UNK, TWICE DAILY (1-0-1)
     Route: 065
  10. LAITEA [Concomitant]
     Indication: Product used for unknown indication
     Dosage: 80 MG, ONCE DAILY (1-0-0)
     Route: 065

REACTIONS (5)
  - Myoclonus [Not Recovered/Not Resolved]
  - Condition aggravated [Not Recovered/Not Resolved]
  - Brain stem microhaemorrhage [Not Recovered/Not Resolved]
  - Impaired work ability [Not Recovered/Not Resolved]
  - Sleep disorder [Not Recovered/Not Resolved]

NARRATIVE: CASE EVENT DATE: 20210501
